FAERS Safety Report 6285557-0 (Version None)
Quarter: 2009Q3

REPORT INFORMATION
  Report Type: 
  Country: None (occurrence: None)
  Receive Date: 20090727
  Receipt Date: 20090716
  Transmission Date: 20100115
  Serious: Yes (Hospitalization, Other)
  Sender: FDA-Public Use
  Company Number: US-BAXTER-2009BH010551

PATIENT
  Age: 83 Year
  Sex: Male

DRUGS (1)
  1. DIANEAL [Suspect]
     Indication: PERITONEAL DIALYSIS
     Route: 033
     Dates: start: 20071214, end: 20090101

REACTIONS (4)
  - BODY TEMPERATURE INCREASED [None]
  - DIARRHOEA [None]
  - DIVERTICULAR PERFORATION [None]
  - PERITONITIS BACTERIAL [None]
